FAERS Safety Report 17751319 (Version 1)
Quarter: 2020Q2

REPORT INFORMATION
  Report Type: Spontaneous
  Country: CA (occurrence: CA)
  Receive Date: 20200506
  Receipt Date: 20200506
  Transmission Date: 20200714
  Serious: Yes (Hospitalization)
  Sender: FDA-Public Use
  Company Number: ALC2020CA003392

PATIENT
  Age: 5 Month
  Sex: Female
  Weight: 4 kg

DRUGS (7)
  1. IRON [Concomitant]
     Active Substance: IRON
     Indication: PRODUCT USED FOR UNKNOWN INDICATION
     Dosage: LIQUID
     Route: 065
  2. VITAMIN D [VITAMIN D NOS] [Concomitant]
     Active Substance: VITAMIN D NOS
     Indication: PRODUCT USED FOR UNKNOWN INDICATION
     Route: 065
  3. CYCLOGYL [Suspect]
     Active Substance: CYCLOPENTOLATE HYDROCHLORIDE
     Dosage: 1 DRP 2 EVERY 2 DAYS
     Route: 047
  4. TIMOLOL. [Concomitant]
     Active Substance: TIMOLOL
     Indication: PRODUCT USED FOR UNKNOWN INDICATION
     Route: 065
  5. MOXIFLOXACIN. [Concomitant]
     Active Substance: MOXIFLOXACIN
     Indication: PRODUCT USED FOR UNKNOWN INDICATION
     Route: 065
  6. PREDNISONE. [Concomitant]
     Active Substance: PREDNISONE
     Indication: PRODUCT USED FOR UNKNOWN INDICATION
     Route: 065
  7. CYCLOGYL [Suspect]
     Active Substance: CYCLOPENTOLATE HYDROCHLORIDE
     Indication: MYDRIASIS
     Dosage: 1 GTT 4 EVERY 4 DAYS
     Route: 047

REACTIONS (3)
  - Weight decreased [Unknown]
  - Hypersomnia [Unknown]
  - Fluid intake reduced [Unknown]
